FAERS Safety Report 12564382 (Version 2)
Quarter: 2016Q3

REPORT INFORMATION
  Report Type: Report from Study
  Country: US (occurrence: US)
  Receive Date: 20160718
  Receipt Date: 20160729
  Transmission Date: 20161109
  Serious: Yes (Other)
  Sender: FDA-Public Use
  Company Number: US-AMGEN-USASP2016090899

PATIENT
  Age: 57 Year
  Sex: Female

DRUGS (1)
  1. ENBREL [Suspect]
     Active Substance: ETANERCEPT
     Indication: PSORIATIC ARTHROPATHY
     Dosage: 50 MG, QWK
     Route: 058
     Dates: start: 2006

REACTIONS (15)
  - Loss of consciousness [Unknown]
  - Injection site discomfort [Unknown]
  - Arthralgia [Recovering/Resolving]
  - Musculoskeletal disorder [Unknown]
  - Memory impairment [Unknown]
  - Fall [Unknown]
  - Arthropathy [Unknown]
  - Visual impairment [Unknown]
  - Musculoskeletal pain [Recovering/Resolving]
  - Neck pain [Recovering/Resolving]
  - Drug dose omission [Unknown]
  - Concussion [Unknown]
  - Pain in extremity [Recovering/Resolving]
  - Asthenia [Unknown]
  - Wrong technique in product usage process [Unknown]

NARRATIVE: CASE EVENT DATE: 2006
